FAERS Safety Report 26187034 (Version 1)
Quarter: 2025Q4

REPORT INFORMATION
  Report Type: Spontaneous
  Country: EU (occurrence: EU)
  Receive Date: 20251222
  Receipt Date: 20251222
  Transmission Date: 20260118
  Serious: Yes (Other)
  Sender: ALCON
  Company Number: None

PATIENT

DRUGS (1)
  1. LATANOPROST\NETARSUDIL MESYLATE [Suspect]
     Active Substance: LATANOPROST\NETARSUDIL MESYLATE
     Indication: Intraocular pressure increased
     Dosage: 1 X PER DAY
     Route: 047
     Dates: start: 20240501, end: 20241201

REACTIONS (3)
  - Oedema mucosal [Recovering/Resolving]
  - Hypoacusis [Recovering/Resolving]
  - Asthma [Recovering/Resolving]
